FAERS Safety Report 19129200 (Version 1)
Quarter: 2021Q2

REPORT INFORMATION
  Report Type: Spontaneous
  Country: US (occurrence: US)
  Receive Date: 20210413
  Receipt Date: 20210413
  Transmission Date: 20210717
  Serious: No
  Sender: FDA-Public Use
  Company Number: US-PFIZER INC-2021072856

PATIENT
  Age: 58 Year
  Sex: Female

DRUGS (2)
  1. SOMAVERT [Suspect]
     Active Substance: PEGVISOMANT
     Indication: GIGANTISM
     Dosage: 15 MG, DAILY
     Route: 058
     Dates: start: 20200523
  2. SOMAVERT [Suspect]
     Active Substance: PEGVISOMANT
     Indication: ACROMEGALY
     Dosage: 15 MG, 2X/DAY
     Dates: start: 20200617

REACTIONS (2)
  - Off label use [Unknown]
  - Insulin-like growth factor abnormal [Not Recovered/Not Resolved]

NARRATIVE: CASE EVENT DATE: 20200617
